FAERS Safety Report 6324928-0 (Version None)
Quarter: 2009Q3

REPORT INFORMATION
  Report Type: 
  Country: None (occurrence: None)
  Receive Date: 20090824
  Receipt Date: 20090618
  Transmission Date: 20100115
  Serious: No
  Sender: FDA-Public Use
  Company Number: US-ABBOTT-09P-163-0580907-00

PATIENT
  Sex: Male
  Weight: 71.278 kg

DRUGS (8)
  1. NIASPAN [Suspect]
     Indication: HIGH DENSITY LIPOPROTEIN DECREASED
     Dates: start: 20090617
  2. RED RICE YEAST WITH CO Q 10 [Concomitant]
     Indication: DRUG USE FOR UNKNOWN INDICATION
  3. GARLIC [Concomitant]
     Indication: DRUG USE FOR UNKNOWN INDICATION
  4. SHARK CARTILAGE [Concomitant]
     Indication: DRUG USE FOR UNKNOWN INDICATION
  5. UNKNOWN MULTIVITAMIN [Concomitant]
     Indication: DRUG USE FOR UNKNOWN INDICATION
  6. CINNAMON [Concomitant]
     Indication: DRUG USE FOR UNKNOWN INDICATION
  7. FLEXAMIN [Concomitant]
     Indication: DRUG USE FOR UNKNOWN INDICATION
  8. BILLIBERRY [Concomitant]
     Indication: DRUG USE FOR UNKNOWN INDICATION

REACTIONS (2)
  - HEADACHE [None]
  - POOR QUALITY SLEEP [None]
